FAERS Safety Report 6823335-1 (Version None)
Quarter: 2010Q3

REPORT INFORMATION
  Report Type: 
  Country: None (occurrence: None)
  Receive Date: 20100708
  Receipt Date: 20100628
  Transmission Date: 20110219
  Serious: Yes (Hospitalization)
  Sender: FDA-Public Use
  Company Number: ES-ELI_LILLY_AND_COMPANY-ES201007000059

PATIENT
  Sex: Female

DRUGS (8)
  1. FORTEO [Suspect]
     Indication: OSTEOPOROSIS
     Dosage: 20 UG, DAILY (1/D)
     Route: 058
     Dates: start: 20091221
  2. ENALAPRIL MALEATE [Concomitant]
     Indication: HYPERTENSION
     Dosage: UNK, DAILY (1/D) 1 TABLET IN THE MORNING
     Route: 048
  3. TRANKIMAZIN [Concomitant]
     Indication: ANXIETY
     Dosage: 0.25 MG, DAILY (1/D) WITH BREAKFAST
     Route: 048
  4. OMEPRAZOLE [Concomitant]
     Dosage: UNK, DAILY (1/D) 1 TABLET WITH BREAKFAST
     Route: 048
  5. SIMVASTATINA [Concomitant]
     Indication: HYPERCHOLESTEROLAEMIA
     Dosage: UNK, DAILY (1/D) AT NIGHT
     Route: 048
  6. NOBRITOL [Concomitant]
     Dosage: UNK, DAILY (1/D) AT NIGHT
     Route: 048
  7. ACETAMINOPHEN [Concomitant]
     Indication: PAIN
     Dosage: UNK, AS NEEDED
     Route: 048
  8. NOLOTIL [Concomitant]
     Indication: PAIN
     Dosage: UNK, AS NEEDED
     Route: 048

REACTIONS (1)
  - HIP FRACTURE [None]
